FAERS Safety Report 9185008 (Version 1)
Quarter: 2013Q1

REPORT INFORMATION
  Report Type: Spontaneous
  Country: JP (occurrence: JP)
  Receive Date: 20130325
  Receipt Date: 20130325
  Transmission Date: 20140127
  Serious: Yes (Other)
  Sender: FDA-Public Use
  Company Number: JP-BRISTOL-MYERS SQUIBB COMPANY-18704262

PATIENT
  Sex: Female

DRUGS (2)
  1. METGLUCO [Suspect]
     Indication: TYPE 2 DIABETES MELLITUS
     Route: 048
     Dates: end: 20130306
  2. LIPITOR [Suspect]
     Route: 048
     Dates: end: 20130306

REACTIONS (1)
  - Rhabdomyolysis [Recovering/Resolving]
